FAERS Safety Report 4398312-3 (Version None)
Quarter: 2004Q3

REPORT INFORMATION
  Report Type: 
  Country: None (occurrence: None)
  Receive Date: 20040712
  Receipt Date: 20040629
  Transmission Date: 20050211
  Serious: Yes (Death)
  Sender: FDA-Public Use
  Company Number: 2004043701

PATIENT
  Age: 80 Year
  Sex: Male

DRUGS (2)
  1. SORTIS (ATORVASTATIN) [Suspect]
     Indication: STENT PLACEMENT
     Dosage: 20 MG (1 IN 1 D), ORAL
     Route: 048
     Dates: start: 20040601
  2. ALL OTHER THERAPEUTIC PRODUCTS (ALL OTHER THERAPEUTIC PRODUCTS) [Concomitant]

REACTIONS (2)
  - DEVICE FAILURE [None]
  - STENT OCCLUSION [None]
